FAERS Safety Report 16611718 (Version 1)
Quarter: 2019Q3

REPORT INFORMATION
  Report Type: Spontaneous
  Country: US (occurrence: US)
  Receive Date: 20190722
  Receipt Date: 20190722
  Transmission Date: 20191004
  Serious: No
  Sender: FDA-Public Use
  Company Number: US-ALLERGAN-1915133US

PATIENT
  Age: 10 Year
  Sex: Female

DRUGS (2)
  1. TRIPTORELIN PAMOATE - BP [Suspect]
     Active Substance: TRIPTORELIN PAMOATE
     Indication: UNEVALUABLE EVENT
     Dosage: 22.5 MG, SINGLE
     Route: 030
     Dates: start: 20181009, end: 20181009
  2. TRIPTORELIN PAMOATE - BP [Suspect]
     Active Substance: TRIPTORELIN PAMOATE
     Dosage: 22.5 UNK
     Route: 030
     Dates: start: 20190326, end: 20190326

REACTIONS (5)
  - Puberty [Unknown]
  - Needle issue [Unknown]
  - Off label use [Unknown]
  - Injury [Unknown]
  - Product use complaint [Unknown]

NARRATIVE: CASE EVENT DATE: 20190326
